FAERS Safety Report 16074361 (Version 1)
Quarter: 2019Q1

REPORT INFORMATION
  Report Type: Spontaneous
  Country: US (occurrence: US)
  Receive Date: 20190314
  Receipt Date: 20190314
  Transmission Date: 20190418
  Serious: No
  Sender: FDA-Public Use
  Company Number: US-GUERBET-US-20180228

PATIENT
  Age: 54 Year
  Weight: 113.7 kg

DRUGS (1)
  1. DOTAREM [Suspect]
     Active Substance: GADOTERATE MEGLUMINE
     Indication: NUCLEAR MAGNETIC RESONANCE IMAGING BRAIN
     Route: 042
     Dates: start: 20180821, end: 20180821

REACTIONS (4)
  - Erythema [Recovered/Resolved]
  - Dysphagia [Recovered/Resolved]
  - Pruritus generalised [Recovered/Resolved]
  - Cough [Recovered/Resolved]

NARRATIVE: CASE EVENT DATE: 20180821
